FAERS Safety Report 9058305 (Version 1)
Quarter: 2013Q1

REPORT INFORMATION
  Report Type: Report from Study
  Country: CA (occurrence: CA)
  Receive Date: 20130211
  Receipt Date: 20130211
  Transmission Date: 20140127
  Serious: Yes (Other)
  Sender: FDA-Public Use
  Company Number: CA-JNJFOC-20130117350

PATIENT
  Age: 68 None
  Sex: Male
  Weight: 85 kg

DRUGS (2)
  1. REMICADE [Suspect]
     Indication: PSORIASIS
     Route: 042
     Dates: start: 20130116
  2. REMICADE [Suspect]
     Indication: PSORIASIS
     Dosage: INDUCTION PHASE
     Route: 042
     Dates: start: 20130108

REACTIONS (7)
  - Skin exfoliation [Unknown]
  - Secretion discharge [Not Recovered/Not Resolved]
  - Skin fissures [Unknown]
  - Cough [Not Recovered/Not Resolved]
  - Diarrhoea [Not Recovered/Not Resolved]
  - Decreased appetite [Unknown]
  - Asthenia [Unknown]
